FAERS Safety Report 8900385 (Version 4)
Quarter: 2013Q1

REPORT INFORMATION
  Report Type: Spontaneous
  Country: JP (occurrence: JP)
  Receive Date: 20121109
  Receipt Date: 20130207
  Transmission Date: 20140127
  Serious: Yes (Death)
  Sender: FDA-Public Use
  Company Number: JP-B.I. PHARMACEUTICALS,INC./RIDGEFIELD-2012-BP-27493NB

PATIENT
  Age: 83 Year
  Sex: Male
  Weight: 53 kg

DRUGS (9)
  1. PRAZAXA [Suspect]
     Indication: ATRIAL FIBRILLATION
     Dosage: 220 MG
     Route: 048
     Dates: start: 20120418, end: 20120920
  2. PLAVIX [Suspect]
     Indication: CEREBROVASCULAR DISORDER
     Dosage: 75 MG
     Route: 048
     Dates: start: 20090918, end: 20120920
  3. MUCOSTA [Concomitant]
     Dosage: 100 MG
     Route: 048
  4. VASOLAN [Concomitant]
     Dosage: 80 MG
     Route: 048
  5. HALFDIGOXIN [Concomitant]
     Dosage: 0.125 MG
     Route: 048
  6. MICARDIS [Concomitant]
     Dosage: 40 MG
     Route: 048
  7. LENDEM [Concomitant]
     Dosage: 0.25 MG
     Route: 048
  8. FLIVAS [Concomitant]
     Dosage: 75 MG
     Route: 048
  9. EVIPROSTAT [Concomitant]
     Route: 048

REACTIONS (5)
  - Subarachnoid haemorrhage [Fatal]
  - Injury [Fatal]
  - Fall [Fatal]
  - Brain contusion [Fatal]
  - Subdural haematoma [Fatal]
